FAERS Safety Report 21559214 (Version 1)
Quarter: 2022Q4

REPORT INFORMATION
  Report Type: Spontaneous
  Country: FR (occurrence: FR)
  Receive Date: 20221107
  Receipt Date: 20221107
  Transmission Date: 20230113
  Serious: Yes (Hospitalization)
  Sender: FDA-Public Use
  Company Number: None

PATIENT
  Age: 39 Year
  Sex: Male
  Weight: 59 kg

DRUGS (4)
  1. CLOZAPINE [Interacting]
     Active Substance: CLOZAPINE
     Indication: Schizophrenia
     Dosage: 500 MILLIGRAM, QD
     Route: 048
     Dates: start: 201912, end: 20220811
  2. CLOZAPINE [Interacting]
     Active Substance: CLOZAPINE
     Dosage: 400 MILLIGRAM, QD
     Route: 048
     Dates: start: 20171129, end: 201912
  3. CANNABIDIOL [Interacting]
     Active Substance: CANNABIDIOL
     Indication: Product used for unknown indication
     Dosage: INHALATION FLOWER/RESIN5 TO 6/D
     Dates: start: 202203
  4. TROPATEPINE HYDROCHLORIDE [Concomitant]
     Active Substance: TROPATEPINE HYDROCHLORIDE
     Indication: Parkinsonism
     Dosage: 15 MILLIGRAM, QD
     Route: 048
     Dates: start: 20220215, end: 20220811

REACTIONS (3)
  - Neutropenia [Recovered/Resolved]
  - Drug interaction [Unknown]
  - Substance use [Unknown]

NARRATIVE: CASE EVENT DATE: 20220810
